FAERS Safety Report 8461416-X (Version None)
Quarter: 2012Q2

REPORT INFORMATION
  Report Type: 
  Country: None (occurrence: None)
  Receive Date: 20120619
  Receipt Date: 20120619
  Transmission Date: 20120825
  Serious: No
  Sender: FDA-Public Use
  Company Number: None

PATIENT
  Age: 49 Year
  Sex: Female
  Weight: 78.0187 kg

DRUGS (1)
  1. EVAMIST [Suspect]
     Indication: OESTROGEN DEFICIENCY
     Dosage: 2 PUMPS TO ARM QD
     Dates: start: 20080101

REACTIONS (2)
  - ACCIDENTAL EXPOSURE [None]
  - TREATMENT NONCOMPLIANCE [None]
